FAERS Safety Report 22084687 (Version 1)
Quarter: 2023Q1

REPORT INFORMATION
  Report Type: Spontaneous
  Country: US (occurrence: US)
  Receive Date: 20230310
  Receipt Date: 20230310
  Transmission Date: 20230417
  Serious: No
  Sender: FDA-Public Use
  Company Number: US-BIOVITRUM-2023-US-005850

PATIENT
  Sex: Female
  Weight: 14 kg

DRUGS (10)
  1. SYNAGIS [Suspect]
     Active Substance: PALIVIZUMAB
     Indication: Congenital genital malformation
     Route: 030
  2. SYNAGIS [Suspect]
     Active Substance: PALIVIZUMAB
     Indication: Tracheostomy
  3. EPINEPHRINE [Concomitant]
     Active Substance: EPINEPHRINE
  4. REFRESH CELLUVISC 1% DROPER GEL [Concomitant]
  5. GLYCOPYRROLATE [Concomitant]
     Active Substance: GLYCOPYRROLATE
  6. FLONASE ALLERGY RELIEF [Concomitant]
     Active Substance: FLUTICASONE PROPIONATE
  7. FLOVENT HFA 44 [Concomitant]
  8. VITAMINS [Concomitant]
     Active Substance: VITAMINS
     Dosage: 250-50 ML DROPS
  9. CETYLPYRIDINIUM CHLORIDE [Concomitant]
     Active Substance: CETYLPYRIDINIUM CHLORIDE
  10. NEXIUM [Concomitant]
     Active Substance: ESOMEPRAZOLE MAGNESIUM

REACTIONS (3)
  - Pyrexia [Unknown]
  - Illness [Unknown]
  - Product dose omission issue [Unknown]
